FAERS Safety Report 6924610-2 (Version None)
Quarter: 2010Q3

REPORT INFORMATION
  Report Type: 
  Country: None (occurrence: None)
  Receive Date: 20100813
  Receipt Date: 20100805
  Transmission Date: 20110219
  Serious: Yes (Hospitalization)
  Sender: FDA-Public Use
  Company Number: GB-AMGEN-QUU428186

PATIENT
  Sex: Female
  Weight: 71.8 kg

DRUGS (5)
  1. ENBREL [Suspect]
     Indication: JUVENILE ARTHRITIS
     Route: 058
     Dates: start: 20070320, end: 20090630
  2. ENBREL [Suspect]
     Route: 058
     Dates: start: 20090701
  3. FOLIC ACID [Concomitant]
     Route: 048
     Dates: start: 20050501
  4. ACETAMINOPHEN [Concomitant]
     Indication: ANALGESIC THERAPY
     Dosage: 500 MG WHEN REQUIRED
     Route: 048
     Dates: start: 20000101
  5. DEPO-MEDROL [Concomitant]
     Dates: start: 20050501

REACTIONS (1)
  - TONSILLECTOMY [None]
